FAERS Safety Report 6140173-6 (Version None)
Quarter: 2009Q2

REPORT INFORMATION
  Report Type: 
  Country: None (occurrence: None)
  Receive Date: 20090401
  Receipt Date: 20090325
  Transmission Date: 20091009
  Serious: Yes (Other)
  Sender: FDA-Public Use
  Company Number: GB-ABBOTT-09P-167-0561702-00

PATIENT
  Sex: Male

DRUGS (2)
  1. HUMIRA [Suspect]
     Indication: PSORIASIS
     Route: 058
     Dates: start: 20081002
  2. GUMEPIRIDE [Concomitant]
     Indication: DIABETES MELLITUS
     Route: 048
     Dates: start: 20080501

REACTIONS (2)
  - DRUG ADMINISTRATION ERROR [None]
  - WOUND [None]
